FAERS Safety Report 11895238 (Version 1)
Quarter: 2016Q1

REPORT INFORMATION
  Report Type: Spontaneous
  Country: US (occurrence: US)
  Receive Date: 20160107
  Receipt Date: 20160107
  Transmission Date: 20160526
  Serious: No
  Sender: FDA-Public Use
  Company Number: US-PFIZER INC-2015475233

PATIENT
  Age: 65 Year
  Sex: Female
  Weight: 64 kg

DRUGS (5)
  1. PREMARIN [Suspect]
     Active Substance: ESTROGENS, CONJUGATED
     Dosage: 0.625 MG, 2X/WEEK
     Dates: start: 2015, end: 2015
  2. IBUPROFEN. [Concomitant]
     Active Substance: IBUPROFEN
     Dosage: 800 MG, 1X/DAY
  3. CALCIUM [Concomitant]
     Active Substance: CALCIUM
  4. LEVOTHYROXINE. [Concomitant]
     Active Substance: LEVOTHYROXINE
  5. PREMARIN [Suspect]
     Active Substance: ESTROGENS, CONJUGATED
     Indication: DYSPAREUNIA
     Dosage: 0.625 MG, DAILY
     Dates: start: 201502, end: 2015

REACTIONS (2)
  - Memory impairment [Unknown]
  - Feeling abnormal [Unknown]
